FAERS Safety Report 9201135 (Version 1)
Quarter: 2013Q2

REPORT INFORMATION
  Report Type: Spontaneous
  Country: CN (occurrence: CN)
  Receive Date: 20130401
  Receipt Date: 20130401
  Transmission Date: 20140414
  Serious: Yes (Congenital Anomaly)
  Sender: FDA-Public Use
  Company Number: CN-JNJFOC-20130315183

PATIENT
  Sex: 0

DRUGS (2)
  1. DAKTARIN [Suspect]
     Route: 064
  2. DAKTARIN [Suspect]
     Indication: FOETAL EXPOSURE DURING PREGNANCY
     Route: 064

REACTIONS (1)
  - Congenital anomaly [Unknown]
